FAERS Safety Report 6906999-3 (Version None)
Quarter: 2010Q3

REPORT INFORMATION
  Report Type: 
  Country: None (occurrence: None)
  Receive Date: 20100804
  Receipt Date: 20080107
  Transmission Date: 20110219
  Serious: Yes (Life-Threatening)
  Sender: FDA-Public Use
  Company Number: US-PFIZER INC-2008002067

PATIENT
  Sex: Male

DRUGS (2)
  1. NARDIL [Suspect]
  2. ANAESTHETICS [Interacting]
     Indication: INDUCTION OF ANAESTHESIA

REACTIONS (1)
  - DRUG INTERACTION [None]
